FAERS Safety Report 8517806-X (Version None)
Quarter: 2012Q3

REPORT INFORMATION
  Report Type: 
  Country: None (occurrence: None)
  Receive Date: 20120718
  Receipt Date: 20120709
  Transmission Date: 20120928
  Serious: Yes (Other)
  Sender: FDA-Public Use
  Company Number: US-ASTRAZENECA-2012SE42012

PATIENT
  Age: 53 Year
  Sex: Male

DRUGS (2)
  1. TOPROL-XL [Suspect]
     Route: 048
  2. OTHER MEDICATION [Suspect]
     Route: 065

REACTIONS (8)
  - ADVERSE EVENT [None]
  - FEELING ABNORMAL [None]
  - BLOOD PRESSURE INCREASED [None]
  - MYOCARDIAL INFARCTION [None]
  - BLOOD PRESSURE ABNORMAL [None]
  - DRUG THERAPY CHANGED [None]
  - DRUG DOSE OMISSION [None]
  - CEREBROVASCULAR ACCIDENT [None]
